FAERS Safety Report 6787548-X (Version None)
Quarter: 2010Q2

REPORT INFORMATION
  Report Type: 
  Country: None (occurrence: None)
  Receive Date: 20100623
  Receipt Date: 20100615
  Transmission Date: 20101027
  Serious: Yes (Other)
  Sender: FDA-Public Use
  Company Number: US-ROCHE-710737

PATIENT
  Age: 49 Year
  Sex: Female
  Weight: 47.6 kg

DRUGS (2)
  1. BONIVA [Suspect]
     Indication: OSTEOPOROSIS
     Dosage: OTHER INDICATION: OSTEOPENIA
     Route: 048
     Dates: start: 20100606
  2. LOVASTATIN [Concomitant]

REACTIONS (3)
  - ASTHENIA [None]
  - BLINDNESS [None]
  - LOSS OF CONSCIOUSNESS [None]
